FAERS Safety Report 10155290 (Version 2)
Quarter: 2014Q2

REPORT INFORMATION
  Report Type: Spontaneous
  Country: PE (occurrence: PE)
  Receive Date: 20140506
  Receipt Date: 20140604
  Transmission Date: 20141212
  Serious: Yes (Death, Other)
  Sender: FDA-Public Use
  Company Number: PE-PFIZER INC-2014123863

PATIENT
  Age: 89 Year
  Sex: Male

DRUGS (1)
  1. NORVASTOR [Suspect]
     Dosage: UNK
     Route: 048

REACTIONS (3)
  - Death [Fatal]
  - Hip fracture [Not Recovered/Not Resolved]
  - Fall [Not Recovered/Not Resolved]
